FAERS Safety Report 20693553 (Version 11)
Quarter: 2023Q2

REPORT INFORMATION
  Report Type: Spontaneous
  Country: US (occurrence: US)
  Receive Date: 20220411
  Receipt Date: 20230522
  Transmission Date: 20230721
  Serious: Yes (Hospitalization, Other)
  Sender: FDA-Public Use
  Company Number: US-BRISTOL-MYERS SQUIBB COMPANY-2022-016865

PATIENT
  Age: 77 Year
  Sex: Female

DRUGS (1)
  1. ORENCIA [Suspect]
     Active Substance: ABATACEPT
     Indication: Product used for unknown indication
     Route: 058

REACTIONS (16)
  - Respiratory tract congestion [Unknown]
  - Dyspnoea [Unknown]
  - Hypothyroidism [Unknown]
  - Colitis [Unknown]
  - Fuchs^ syndrome [Unknown]
  - Ear pain [Unknown]
  - Temporomandibular joint syndrome [Unknown]
  - Memory impairment [Unknown]
  - COVID-19 [Unknown]
  - Pneumonia [Unknown]
  - Syringe issue [Unknown]
  - Product storage error [Unknown]
  - Insomnia [Unknown]
  - Arthralgia [Unknown]
  - Weight decreased [Unknown]
  - Fatigue [Unknown]

NARRATIVE: CASE EVENT DATE: 20220101
